FAERS Safety Report 6505659-0 (Version None)
Quarter: 2009Q4

REPORT INFORMATION
  Report Type: 
  Country: None (occurrence: None)
  Receive Date: 20091217
  Receipt Date: 20091217
  Transmission Date: 20100525
  Serious: Yes (Hospitalization)
  Sender: FDA-Public Use
  Company Number: None

PATIENT
  Age: 58 Year
  Sex: Female
  Weight: 104.5 kg

DRUGS (1)
  1. CIPRO [Suspect]
     Indication: LOCALISED INFECTION

REACTIONS (6)
  - CARDIO-RESPIRATORY ARREST [None]
  - HYPOTENSION [None]
  - MALAISE [None]
  - RASH [None]
  - UPPER RESPIRATORY TRACT INFECTION [None]
  - VENTRICULAR TACHYCARDIA [None]
